FAERS Safety Report 7091019-3 (Version None)
Quarter: 2010Q4

REPORT INFORMATION
  Report Type: 
  Country: None (occurrence: None)
  Receive Date: 20101109
  Receipt Date: 20101103
  Transmission Date: 20110411
  Serious: Yes (Death, Hospitalization)
  Sender: FDA-Public Use
  Company Number: DE-SANOFI-AVENTIS-2010SA066964

PATIENT
  Sex: Male

DRUGS (3)
  1. PLAVIX [Suspect]
     Route: 048
     Dates: start: 20100501, end: 20100501
  2. PLAVIX [Suspect]
     Route: 048
     Dates: start: 20100501, end: 20100501
  3. ASPISOL [Concomitant]
     Route: 042
     Dates: start: 20100501, end: 20100501

REACTIONS (2)
  - ARTERIAL BYPASS OPERATION [None]
  - HAEMORRHAGE [None]
